FAERS Safety Report 11512061 (Version 1)
Quarter: 2015Q3

REPORT INFORMATION
  Report Type: Spontaneous
  Country: JP (occurrence: JP)
  Receive Date: 20150916
  Receipt Date: 20150916
  Transmission Date: 20151125
  Serious: Yes (Other)
  Sender: FDA-Public Use
  Company Number: JP-BRISTOL-MYERS SQUIBB COMPANY-BMS-2015-060438

PATIENT

DRUGS (2)
  1. SUNVEPRA [Suspect]
     Active Substance: ASUNAPREVIR
     Indication: PRODUCT USED FOR UNKNOWN INDICATION
     Route: 048
  2. DAKLINZA [Suspect]
     Active Substance: DACLATASVIR
     Indication: PRODUCT USED FOR UNKNOWN INDICATION
     Dosage: UNK
     Route: 048

REACTIONS (3)
  - Dysphagia [Unknown]
  - Fracture [Unknown]
  - Cerebral infarction [Unknown]
